FAERS Safety Report 9718838 (Version 2)
Quarter: 2013Q4

REPORT INFORMATION
  Report Type: Spontaneous
  Country: IT (occurrence: IT)
  Receive Date: 20131127
  Receipt Date: 20131224
  Transmission Date: 20140711
  Serious: Yes (Hospitalization)
  Sender: FDA-Public Use
  Company Number: IT-ACTAVIS-2013-21621

PATIENT
  Age: 83 Year
  Sex: Male
  Weight: 95 kg

DRUGS (2)
  1. DOCETAXEL (UNKNOWN) [Suspect]
     Indication: PROSTATE CANCER METASTATIC
     Dosage: 30 MG, 1/WEEK
     Route: 042
     Dates: start: 20131016, end: 20131023
  2. PREDNISONE [Concomitant]
     Indication: PRODUCT USED FOR UNKNOWN INDICATION
     Dosage: UNK
     Route: 065
     Dates: start: 20131016, end: 20131023

REACTIONS (2)
  - Diarrhoea [Recovered/Resolved]
  - Enterocolitis [Recovered/Resolved]
